FAERS Safety Report 15592863 (Version 1)
Quarter: 2018Q4

REPORT INFORMATION
  Report Type: Spontaneous
  Country: GB (occurrence: FR)
  Receive Date: 20181107
  Receipt Date: 20181107
  Transmission Date: 20190205
  Serious: Yes (Life-Threatening)
  Sender: FDA-Public Use
  Company Number: FR-FRESENIUS KABI-FK201811477

PATIENT
  Age: 56 Year
  Sex: Female

DRUGS (3)
  1. ETOPOSIDE. [Concomitant]
     Active Substance: ETOPOSIDE
     Indication: OVARIAN EPITHELIAL CANCER
     Dosage: UNK
     Route: 065
     Dates: start: 200906
  2. OXALIPLATIN (MANUFACTURER UNKNOWN) [Suspect]
     Active Substance: OXALIPLATIN
     Indication: OVARIAN EPITHELIAL CANCER
     Dosage: UNK UNK,UNK
     Route: 042
     Dates: start: 200906
  3. ALIZAPRIDE HYDROCHLORIDE [Suspect]
     Active Substance: ALIZAPRIDE HYDROCHLORIDE
     Indication: PROPHYLAXIS OF NAUSEA AND VOMITING
     Dosage: UNK UNK,UNK
     Route: 042

REACTIONS (3)
  - Malaise [Recovered/Resolved]
  - Anaphylactic reaction [Recovered/Resolved]
  - Cardio-respiratory arrest [Recovered/Resolved]

NARRATIVE: CASE EVENT DATE: 200906
